FAERS Safety Report 11977171 (Version 2)
Quarter: 2016Q3

REPORT INFORMATION
  Report Type: Report from Study
  Country: BE (occurrence: BE)
  Receive Date: 20160129
  Receipt Date: 20160712
  Transmission Date: 20161109
  Serious: Yes (Hospitalization)
  Sender: FDA-Public Use
  Company Number: BE-B.I. PHARMACEUTICALS,INC./RIDGEFIELD-2011-BL-00170BL

PATIENT
  Age: 74 Year
  Sex: Female
  Weight: 107 kg

DRUGS (7)
  1. PACLITAXEL. [Suspect]
     Active Substance: PACLITAXEL
     Dosage: 393 MG
     Route: 042
     Dates: start: 20110606, end: 20110606
  2. BIBF 1120 [Suspect]
     Active Substance: NINTEDANIB
     Indication: MALIGNANT PERITONEAL NEOPLASM
     Dosage: 400 MG
     Route: 048
     Dates: start: 20110607, end: 20110731
  3. CARBOPLATIN. [Suspect]
     Active Substance: CARBOPLATIN
     Dosage: 819 MG
     Route: 042
     Dates: start: 20110606, end: 20110606
  4. CARBOPLATIN. [Suspect]
     Active Substance: CARBOPLATIN
     Dosage: 880 MG
     Route: 042
     Dates: start: 20110516, end: 20110516
  5. PACLITAXEL. [Suspect]
     Active Substance: PACLITAXEL
     Indication: OVARIAN CANCER
     Dosage: 295 MG
     Route: 042
     Dates: start: 20110711, end: 20110711
  6. PACLITAXEL. [Suspect]
     Active Substance: PACLITAXEL
     Dosage: 397.25 MG
     Route: 042
     Dates: start: 20110516, end: 20110516
  7. CARBOPLATIN. [Suspect]
     Active Substance: CARBOPLATIN
     Indication: OVARIAN CANCER
     Dosage: 576 MG
     Route: 042
     Dates: start: 20110711, end: 20110711

REACTIONS (5)
  - Ototoxicity [Not Recovered/Not Resolved]
  - Thrombocytopenia [Recovered/Resolved]
  - Blindness transient [Recovered/Resolved]
  - Pulmonary embolism [Recovered/Resolved]
  - Haemorrhoids [Recovered/Resolved]

NARRATIVE: CASE EVENT DATE: 20110615
